FAERS Safety Report 5810143-3 (Version None)
Quarter: 2008Q3

REPORT INFORMATION
  Report Type: 
  Country: None (occurrence: None)
  Receive Date: 20080715
  Receipt Date: 20070814
  Transmission Date: 20090109
  Serious: No
  Sender: FDA-Public Use
  Company Number: A0666739A

PATIENT
  Age: 46 Year
  Sex: Female
  Weight: 95.5 kg

DRUGS (2)
  1. IMITREX [Suspect]
     Indication: MIGRAINE
     Dosage: 100MG UNKNOWN
     Route: 048
     Dates: start: 20070701
  2. NO CONCURRENT MEDICATION [Concomitant]

REACTIONS (2)
  - HEADACHE [None]
  - SENSATION OF HEAVINESS [None]
